FAERS Safety Report 15979438 (Version 1)
Quarter: 2019Q1

REPORT INFORMATION
  Report Type: Spontaneous
  Country: US (occurrence: US)
  Receive Date: 20190124
  Receipt Date: 20190124
  Transmission Date: 20190418
  Serious: No
  Sender: FDA-Public Use
  Company Number: None

PATIENT
  Age: 48 Year
  Sex: Female

DRUGS (1)
  1. COPAXONE [Suspect]
     Active Substance: GLATIRAMER ACETATE
     Route: 058
     Dates: start: 201701

REACTIONS (4)
  - Hypersensitivity [None]
  - Burning sensation [None]
  - Chest pain [None]
  - Mass [None]

NARRATIVE: CASE EVENT DATE: 201812
